FAERS Safety Report 5723186-5 (Version None)
Quarter: 2008Q2

REPORT INFORMATION
  Report Type: 
  Country: None (occurrence: None)
  Receive Date: 20080423
  Receipt Date: 20071109
  Transmission Date: 20081010
  Serious: Yes (Other)
  Sender: FDA-Public Use
  Company Number: 247312

PATIENT
  Age: 37 Year
  Sex: Female

DRUGS (2)
  1. AVASTATIN(BEVACIZUMAB) POWDER AND SOLVENT FOR SOLUTION FOR INFUSION, 1 [Suspect]
     Indication: OVARIAN CANCER
  2. CHEMOTHERAPY (UNK INGREDIENTS) (ANTINEOPLASTIC AGENT) [Concomitant]

REACTIONS (1)
  - PULMONARY EMBOLISM [None]
